FAERS Safety Report 5901953-2 (Version None)
Quarter: 2008Q3

REPORT INFORMATION
  Report Type: 
  Country: None (occurrence: None)
  Receive Date: 20080929
  Receipt Date: 20080811
  Transmission Date: 20090109
  Serious: No
  Sender: FDA-Public Use
  Company Number: US-BRISTOL-MYERS SQUIBB COMPANY-14297634

PATIENT
  Age: 44 Year
  Sex: Female
  Weight: 81 kg

DRUGS (8)
  1. BUSPAR [Suspect]
     Indication: DEPRESSION
     Route: 048
     Dates: start: 20080519, end: 20080101
  2. FENTANYL TRANSDERMAL SYSTEM [Suspect]
     Indication: BACK PAIN
     Dosage: FENTANYL TRANSDERMAL SYSTEM PATCH.1DF=75MCG/HR FROM JUL05-APR08,INCREASED TO 100MCG/HR ON APR08-ONG
     Route: 062
     Dates: start: 20050701
  3. EFFEXOR XR [Concomitant]
     Indication: DEPRESSION
     Dosage: FORM = TAB
     Route: 048
     Dates: start: 20050101
  4. CADUET [Concomitant]
     Indication: HYPERTENSION
     Dosage: FORM = TAB
     Route: 048
     Dates: start: 20070101
  5. PREMARIN [Concomitant]
     Indication: HORMONE REPLACEMENT THERAPY
     Dosage: FORM = TAB
     Route: 048
     Dates: start: 19980101
  6. NEXIUM [Concomitant]
     Indication: GASTROOESOPHAGEAL REFLUX DISEASE
     Dosage: FORM = CAPSULES
     Route: 048
  7. REGLAN [Concomitant]
     Indication: GASTRIC DISORDER
     Dosage: FORM = TABS
     Route: 048
  8. NORVASC [Concomitant]
     Indication: HYPERTENSION
     Dosage: FORM = TABS
     Route: 048

REACTIONS (3)
  - NAUSEA [None]
  - VOMITING [None]
  - WEIGHT DECREASED [None]
